FAERS Safety Report 5557887-9 (Version None)
Quarter: 2007Q4

REPORT INFORMATION
  Report Type: 
  Country: None (occurrence: None)
  Receive Date: 20071214
  Receipt Date: 20071207
  Transmission Date: 20080405
  Serious: Yes (Other)
  Sender: FDA-Public Use
  Company Number: JP-ASTRAZENECA-2007AP07848

PATIENT
  Age: 80 Year
  Sex: Female

DRUGS (1)
  1. XYLOCAINE [Suspect]
     Indication: EPIDURAL ANAESTHESIA
     Route: 008
     Dates: start: 20071204, end: 20071204

REACTIONS (2)
  - DRUG ADMINISTRATION ERROR [None]
  - PARALYSIS [None]
